FAERS Safety Report 24386905 (Version 2)
Quarter: 2024Q4

REPORT INFORMATION
  Report Type: Report from Study
  Country: IN (occurrence: IN)
  Receive Date: 20241002
  Receipt Date: 20241212
  Transmission Date: 20250115
  Serious: Yes (Death, Hospitalization)
  Sender: ROCHE
  Company Number: IN-ROCHE-10000089078

PATIENT
  Age: 72 Year
  Sex: Male
  Weight: 84.9 kg

DRUGS (1)
  1. POLIVY [Suspect]
     Active Substance: POLATUZUMAB VEDOTIN-PIIQ
     Indication: Diffuse large B-cell lymphoma
     Route: 042

REACTIONS (5)
  - Neutropenia [Unknown]
  - Asthenia [Unknown]
  - Oxygen saturation decreased [Unknown]
  - Off label use [Unknown]
  - Pneumonia [Fatal]
